FAERS Safety Report 9403659 (Version 1)
Quarter: 2013Q3

REPORT INFORMATION
  Report Type: Spontaneous
  Country: US (occurrence: US)
  Receive Date: 20130717
  Receipt Date: 20130717
  Transmission Date: 20140515
  Serious: Yes (Other)
  Sender: FDA-Public Use
  Company Number: US-AMGEN-USASP2013049630

PATIENT
  Age: 62 Year
  Sex: Male
  Weight: 77.1 kg

DRUGS (6)
  1. PROCRIT [Suspect]
     Indication: NEPHROGENIC ANAEMIA
     Dosage: 1000 UNIT, UNK
     Route: 058
     Dates: start: 1997
  2. CELLCEPT                           /01275102/ [Concomitant]
     Indication: PROPHYLAXIS AGAINST TRANSPLANT REJECTION
     Dosage: UNK
     Dates: start: 1997
  3. PREDNISONE [Concomitant]
     Indication: PROPHYLAXIS AGAINST TRANSPLANT REJECTION
     Dosage: UNK
     Dates: start: 1997
  4. NEORAL [Concomitant]
     Indication: PROPHYLAXIS AGAINST TRANSPLANT REJECTION
     Dosage: 500 MG, BID
     Dates: start: 1997
  5. FLOMAX                             /00889901/ [Concomitant]
     Indication: PROSTATIC DISORDER
     Dosage: UNK
     Dates: start: 2010
  6. LANTUS [Concomitant]
     Indication: DIABETES MELLITUS
     Dosage: UNK UNK, QD

REACTIONS (2)
  - Nephrogenic anaemia [Recovered/Resolved]
  - Anaemia [Recovered/Resolved]
